FAERS Safety Report 6131189-4 (Version None)
Quarter: 2009Q1

REPORT INFORMATION
  Report Type: 
  Country: None (occurrence: None)
  Receive Date: 20090323
  Receipt Date: 20090313
  Transmission Date: 20090719
  Serious: Yes (Life-Threatening)
  Sender: FDA-Public Use
  Company Number: 217445

PATIENT
  Sex: Male

DRUGS (6)
  1. VINCRISTINE SULFATE [Suspect]
     Indication: ACUTE LYMPHOCYTIC LEUKAEMIA
     Dosage: MONTHLY, INTRAVENOUS
     Route: 042
  2. METHOTREXATE [Suspect]
     Indication: ACUTE LYMPHOCYTIC LEUKAEMIA
     Dosage: WEEKLY, ORAL
     Route: 048
  3. METHOTREXATE [Suspect]
     Indication: ACUTE LYMPHOCYTIC LEUKAEMIA
     Dosage: EVERY 3 MONTHS, INTRATHECAL
     Route: 037
  4. MERCAPTOPURINE [Suspect]
     Indication: ACUTE LYMPHOCYTIC LEUKAEMIA
     Dosage: DAILY, ORAL
     Route: 048
  5. DEXAMETHASONE TAB [Suspect]
     Indication: ACUTE LYMPHOCYTIC LEUKAEMIA
     Dosage: FIVE DAY PULSE, ORAL
     Route: 048
  6. ACYCLOVIR [Concomitant]

REACTIONS (24)
  - ABDOMINAL PAIN [None]
  - ALANINE AMINOTRANSFERASE INCREASED [None]
  - BACK PAIN [None]
  - BLISTER [None]
  - BLOOD BILIRUBIN INCREASED [None]
  - BREATH ODOUR [None]
  - CARDIAC FAILURE [None]
  - DRUG INEFFECTIVE [None]
  - EXPOSURE TO COMMUNICABLE DISEASE [None]
  - GENERAL PHYSICAL HEALTH DETERIORATION [None]
  - HAEMODIALYSIS [None]
  - HEPATIC FAILURE [None]
  - HEPATOMEGALY [None]
  - HERPES ZOSTER [None]
  - LYMPHOPENIA [None]
  - ORAL PAIN [None]
  - PROCTALGIA [None]
  - RASH [None]
  - RASH ERYTHEMATOUS [None]
  - RENAL FAILURE [None]
  - RESPIRATORY DISTRESS [None]
  - RESPIRATORY FAILURE [None]
  - VARICELLA ZOSTER VIRUS SEROLOGY POSITIVE [None]
  - VIRAL DNA TEST POSITIVE [None]
